FAERS Safety Report 23506486 (Version 2)
Quarter: 2024Q2

REPORT INFORMATION
  Report Type: Spontaneous
  Country: US (occurrence: US)
  Receive Date: 20240209
  Receipt Date: 20240416
  Transmission Date: 20240716
  Serious: Yes (Hospitalization, Other)
  Sender: FDA-Public Use
  Company Number: US-BRISTOL-MYERS SQUIBB COMPANY-2024-020869

PATIENT
  Age: 63 Year
  Sex: Female
  Weight: 71.67 kg

DRUGS (1)
  1. POMALYST [Suspect]
     Active Substance: POMALIDOMIDE
     Indication: Plasma cell myeloma
     Dosage: FREQUENCY: DAILY FOR 21DAYS/3 WEEKS ON 1 WEEK OFF
     Route: 048

REACTIONS (3)
  - Dizziness [Unknown]
  - Blood glucose abnormal [Unknown]
  - Pneumonia [Unknown]
